FAERS Safety Report 7053845-6 (Version None)
Quarter: 2010Q4

REPORT INFORMATION
  Report Type: 
  Country: None (occurrence: None)
  Receive Date: 20101020
  Receipt Date: 20101011
  Transmission Date: 20110411
  Serious: Yes (Hospitalization)
  Sender: FDA-Public Use
  Company Number: PHHY2010RU67545

PATIENT
  Age: 21 Year
  Sex: Male

DRUGS (6)
  1. MYFORTIC [Suspect]
     Dosage: 360 MG, QD
     Dates: start: 20090701
  2. METYPRED [Suspect]
     Dosage: 3 TABLET DAILY
     Dates: start: 20090701
  3. PRESTARIUM [Concomitant]
     Dosage: UNK
  4. INDAP [Concomitant]
     Dosage: UNK
  5. LOKREN [Concomitant]
     Dosage: UNK
  6. SULODEXIDE [Concomitant]
     Dosage: PERIODICALLY

REACTIONS (5)
  - HAEMATURIA [None]
  - NEPHRITIS [None]
  - PROTEINURIA [None]
  - URINARY CASTS [None]
  - URINE ANALYSIS ABNORMAL [None]
